FAERS Safety Report 9343074 (Version 3)
Quarter: 2014Q1

REPORT INFORMATION
  Report Type: Spontaneous
  Country: US (occurrence: US)
  Receive Date: 20130611
  Receipt Date: 20140214
  Transmission Date: 20141002
  Serious: Yes (Hospitalization)
  Sender: FDA-Public Use
  Company Number: US-B.I. PHARMACEUTICALS,INC./RIDGEFIELD-2013-BI-16264BP

PATIENT
  Sex: Female
  Weight: 127.01 kg

DRUGS (23)
  1. PRADAXA [Suspect]
     Indication: CEREBROVASCULAR ACCIDENT PROPHYLAXIS
     Dosage: 300 MG
     Route: 048
     Dates: start: 201106, end: 20120124
  2. PRADAXA [Suspect]
     Indication: THROMBOSIS PROPHYLAXIS
  3. DILTIAZEM [Concomitant]
     Dosage: 180 MG
     Route: 048
     Dates: start: 2004
  4. NAPROXEN DR [Concomitant]
     Dosage: 1000 MG
     Route: 048
  5. ASPIRIN [Concomitant]
     Dosage: 81 MG
  6. ALDACTONE [Concomitant]
     Dosage: 20 MG
     Route: 048
  7. LANOXIN [Concomitant]
  8. PEPCID [Concomitant]
     Dosage: 20 MG
     Route: 048
  9. SYNTHROID [Concomitant]
     Dosage: 75 MCG
     Route: 048
  10. LASIX [Concomitant]
     Route: 048
  11. TOPROL XL [Concomitant]
     Dosage: 50 MG
     Route: 048
  12. NORCO [Concomitant]
  13. TEMAZEPAM [Concomitant]
     Route: 048
  14. MULTIVITAMIN [Concomitant]
  15. FOLIC ACID [Concomitant]
  16. FERROUS SULFATE [Concomitant]
     Dosage: 650 MG
     Route: 048
  17. MILK OF MAGNESIA [Concomitant]
     Route: 048
  18. ALBUTEROL [Concomitant]
     Dosage: 15 MG
     Route: 055
  19. NITROSTAT [Concomitant]
     Route: 060
  20. COLACE [Concomitant]
  21. POTASSIUM [Concomitant]
     Dosage: 10 MEQ
     Route: 048
  22. IPRATROPIUM BROMIDE [Concomitant]
     Route: 055
  23. PRINIVIL [Concomitant]
     Dosage: 20 MG
     Route: 048

REACTIONS (3)
  - Gastrointestinal haemorrhage [Unknown]
  - Epistaxis [Unknown]
  - Anaemia [Unknown]
